FAERS Safety Report 17717848 (Version 2)
Quarter: 2020Q2

REPORT INFORMATION
  Report Type: Report from Study
  Country: GB (occurrence: GB)
  Receive Date: 20200428
  Receipt Date: 20200501
  Transmission Date: 20200714
  Serious: Yes (Other)
  Sender: FDA-Public Use
  Company Number: NVSC2020GB080805

PATIENT
  Sex: Female

DRUGS (1)
  1. HYRIMOZ [Suspect]
     Active Substance: ADALIMUMAB-ADAZ
     Indication: PSORIATIC ARTHROPATHY
     Dosage: 1 DF, Q2W
     Route: 058
     Dates: start: 20190911

REACTIONS (6)
  - Decreased immune responsiveness [Unknown]
  - Injection site pain [Unknown]
  - Product leakage [Unknown]
  - Product dose omission [Unknown]
  - Drug ineffective [Unknown]
  - Incorrect dose administered [Unknown]
